FAERS Safety Report 7912032-7 (Version None)
Quarter: 2011Q4

REPORT INFORMATION
  Report Type: 
  Country: None (occurrence: None)
  Receive Date: 20111108
  Receipt Date: 20110919
  Transmission Date: 20120403
  Serious: Yes (Other)
  Sender: FDA-Public Use
  Company Number: CART-1000067

PATIENT
  Age: 46 Year
  Sex: Male

DRUGS (1)
  1. CARTICEL [Suspect]
     Indication: CARTILAGE INJURY
     Dosage: , INTRA-ARTICULAR
     Route: 014

REACTIONS (1)
  - TREATMENT FAILURE [None]
